FAERS Safety Report 10241627 (Version 3)
Quarter: 2014Q3

REPORT INFORMATION
  Report Type: Spontaneous
  Country: FR (occurrence: FR)
  Receive Date: 20140617
  Receipt Date: 20140723
  Transmission Date: 20150326
  Serious: Yes (Other)
  Sender: FDA-Public Use
  Company Number: FR-PFIZER INC-2014161518

PATIENT
  Age: 85 Year
  Sex: Female

DRUGS (12)
  1. BISOCE [Concomitant]
     Active Substance: BISOPROLOL
     Dosage: 1.25 MG, 1X/DAY
     Dates: start: 201304, end: 20130730
  2. ASPEGIC [Concomitant]
     Active Substance: ASPIRIN DL-LYSINE
     Dosage: 250 MG, 1X/DAY
     Dates: start: 201304, end: 20130728
  3. INEXIUM [Concomitant]
     Active Substance: ESOMEPRAZOLE
     Dosage: 20 MG, UNK
     Dates: start: 201305
  4. IRBESARTAN. [Concomitant]
     Active Substance: IRBESARTAN
     Dosage: 300 MG, 1X/DAY
     Dates: start: 201304, end: 20130730
  5. REPAGLINIDE. [Concomitant]
     Active Substance: REPAGLINIDE
     Dosage: 1MG/DAY
     Dates: start: 201303
  6. GABAPENTIN. [Suspect]
     Active Substance: GABAPENTIN
     Indication: PARTIAL SEIZURES
     Dosage: 300 MG
  7. GABAPENTIN. [Suspect]
     Active Substance: GABAPENTIN
     Dosage: 900 MG, DAILY
  8. CALCIPARINE [Concomitant]
     Active Substance: HEPARIN CALCIUM
     Dosage: 1 INJECTION PER DAY
     Dates: start: 20130710, end: 20130718
  9. TAHOR [Concomitant]
     Active Substance: ATORVASTATIN CALCIUM
     Dosage: 10 MG, 1X/DAY
     Dates: start: 201303
  10. EXELON [Concomitant]
     Active Substance: RIVASTIGMINE TARTRATE
     Dosage: 4.5 MG, PER 24 HOURS
     Dates: start: 20140711
  11. FORTIMEL [Concomitant]
     Active Substance: DIETARY SUPPLEMENT
     Dosage: UNK
     Dates: start: 20130710, end: 20130723
  12. DERMOVAL [Concomitant]
     Active Substance: CLOBETASOL
     Dosage: 0.05 %, UNK
     Dates: start: 20130712, end: 20130721

REACTIONS (2)
  - Toxic encephalopathy [Recovered/Resolved]
  - Hyperammonaemia [Recovered/Resolved]
